FAERS Safety Report 19497840 (Version 3)
Quarter: 2022Q1

REPORT INFORMATION
  Report Type: Spontaneous
  Country: CA (occurrence: CA)
  Receive Date: 20210706
  Receipt Date: 20220314
  Transmission Date: 20220423
  Serious: Yes (Hospitalization)
  Sender: FDA-Public Use
  Company Number: CA-CELGENE-CAN-20210700321

PATIENT
  Age: 79 Year
  Sex: Male

DRUGS (22)
  1. AZACITIDINE [Suspect]
     Active Substance: AZACITIDINE
     Indication: Acute myeloid leukaemia
     Route: 065
     Dates: start: 20210614
  2. PEVONEDISTAT [Suspect]
     Active Substance: PEVONEDISTAT
     Indication: Acute myeloid leukaemia
     Route: 065
     Dates: start: 20210614
  3. VENETOCLAX [Suspect]
     Active Substance: VENETOCLAX
     Indication: Acute myeloid leukaemia
     Route: 065
     Dates: start: 20210614
  4. IRBESARTAN [Concomitant]
     Active Substance: IRBESARTAN
     Indication: Hypertension
     Route: 065
     Dates: start: 20180728
  5. METFORMIN [Concomitant]
     Active Substance: METFORMIN HYDROCHLORIDE
     Indication: Diabetes mellitus
     Route: 065
     Dates: start: 20170509, end: 20210706
  6. ALLOPURINOL [Concomitant]
     Active Substance: ALLOPURINOL
     Indication: Prophylaxis
     Route: 065
     Dates: start: 20210602, end: 20210706
  7. ACETAMINOPHEN [Concomitant]
     Active Substance: ACETAMINOPHEN
     Indication: Pyrexia
     Route: 065
     Dates: start: 20210605
  8. VITAMIN K1 [Concomitant]
     Active Substance: PHYTONADIONE
     Indication: Prophylaxis
     Route: 065
     Dates: start: 20210605, end: 20210618
  9. HYDROMORPHONE [Concomitant]
     Active Substance: HYDROMORPHONE
     Indication: Arthralgia
     Route: 065
     Dates: start: 20210605
  10. HYDROMORPHONE [Concomitant]
     Active Substance: HYDROMORPHONE
     Indication: Back pain
  11. PREDNISONE [Concomitant]
     Active Substance: PREDNISONE
     Indication: Arthralgia
     Route: 065
     Dates: start: 20210606
  12. PREDNISONE [Concomitant]
     Active Substance: PREDNISONE
     Indication: Joint swelling
  13. LOPERAMIDE [Concomitant]
     Active Substance: LOPERAMIDE
     Indication: Diarrhoea
     Route: 065
     Dates: start: 20210606, end: 20210607
  14. LACTATED RINGERS SOLUTION [Concomitant]
     Active Substance: CALCIUM CHLORIDE\POTASSIUM CHLORIDE\SODIUM CHLORIDE\SODIUM LACTATE
     Indication: Diarrhoea
     Route: 065
     Dates: start: 20210606, end: 20210606
  15. DICLOFENAC DIETHYLAMINE [Concomitant]
     Active Substance: DICLOFENAC DIETHYLAMINE
     Indication: Arthralgia
     Route: 065
     Dates: start: 20210609, end: 20210630
  16. NOVORAPID [Concomitant]
     Active Substance: INSULIN ASPART
     Indication: Diabetes mellitus
     Route: 065
     Dates: start: 20210610
  17. VITAMIN D3 [Concomitant]
     Active Substance: CHOLECALCIFEROL
     Indication: Arthralgia
     Route: 065
     Dates: start: 20210611
  18. VALACYCLOVIR [Concomitant]
     Active Substance: VALACYCLOVIR HYDROCHLORIDE
     Indication: Prophylaxis
     Route: 065
     Dates: start: 20210612
  19. ONDANSETRON [Concomitant]
     Active Substance: ONDANSETRON
     Indication: Prophylaxis
     Route: 065
     Dates: start: 20210614, end: 20210621
  20. AMOXICILLIN\CLAVULANIC ACID [Concomitant]
     Active Substance: AMOXICILLIN\CLAVULANIC ACID
     Indication: Prophylaxis
     Route: 065
     Dates: start: 20210614, end: 20210614
  21. DIPHENHYDRAMINE [Concomitant]
     Active Substance: DIPHENHYDRAMINE
     Indication: Prophylaxis
     Route: 065
     Dates: start: 20210610
  22. HYDROXYUREA [Concomitant]
     Active Substance: HYDROXYUREA
     Indication: Acute myeloid leukaemia
     Route: 065

REACTIONS (1)
  - Escherichia bacteraemia [Recovered/Resolved]

NARRATIVE: CASE EVENT DATE: 20210623
